FAERS Safety Report 20881580 (Version 1)
Quarter: 2022Q2

REPORT INFORMATION
  Report Type: Spontaneous
  Country: CN (occurrence: CN)
  Receive Date: 20220527
  Receipt Date: 20220527
  Transmission Date: 20220721
  Serious: Yes (Death)
  Sender: FDA-Public Use
  Company Number: CN-SUN PHARMACEUTICAL INDUSTRIES LTD-2022R1-337978

PATIENT
  Age: 15 Year
  Sex: Male

DRUGS (8)
  1. FUROSEMIDE [Suspect]
     Active Substance: FUROSEMIDE
     Indication: CSF pressure
     Route: 065
  2. METHYLPREDNISOLONE [Suspect]
     Active Substance: METHYLPREDNISOLONE
     Indication: Encephalitis brain stem
     Dosage: 1 GRAM, DAILY
     Route: 065
  3. PIPERACILLIN SODIUM\TAZOBACTAM SODIUM [Suspect]
     Active Substance: PIPERACILLIN SODIUM\TAZOBACTAM SODIUM
     Indication: Antibiotic prophylaxis
     Route: 065
  4. MANNITOL [Suspect]
     Active Substance: MANNITOL
     Indication: CSF pressure
     Route: 065
  5. NALOXONE [Suspect]
     Active Substance: NALOXONE
     Indication: Encephalitis brain stem
     Route: 065
  6. EDARAVONE [Suspect]
     Active Substance: EDARAVONE
     Indication: Encephalitis brain stem
     Route: 065
  7. GANGLIOSIDE GM1 [Suspect]
     Active Substance: GANGLIOSIDE GM1
     Indication: Encephalitis brain stem
     Route: 065
  8. RIBAVIRIN [Suspect]
     Active Substance: RIBAVIRIN
     Indication: Antiviral treatment
     Route: 065

REACTIONS (1)
  - Drug ineffective [Fatal]
